FAERS Safety Report 8568150-6 (Version None)
Quarter: 2012Q3

REPORT INFORMATION
  Report Type: 
  Country: None (occurrence: None)
  Receive Date: 20120803
  Receipt Date: 20110802
  Transmission Date: 20120928
  Serious: No
  Sender: FDA-Public Use
  Company Number: US-ABBOTT-11P-163-0843332-00

PATIENT
  Sex: Male
  Weight: 102.15 kg

DRUGS (2)
  1. BENAZEPRIL HYDROCHLORIDE [Concomitant]
     Indication: PRODUCT USED FOR UNKNOWN INDICATION
  2. NIASPAN [Suspect]
     Indication: BLOOD TRIGLYCERIDES INCREASED
     Dosage: AT BEDTIME
     Dates: start: 20100801

REACTIONS (4)
  - HYPERAESTHESIA [None]
  - HYPOAESTHESIA [None]
  - FEELING HOT [None]
  - HOT FLUSH [None]
